FAERS Safety Report 8959816 (Version 3)
Quarter: 2013Q1

REPORT INFORMATION
  Report Type: Spontaneous
  Country: JP (occurrence: JP)
  Receive Date: 20121212
  Receipt Date: 20130118
  Transmission Date: 20140127
  Serious: Yes (Life-Threatening, Other)
  Sender: FDA-Public Use
  Company Number: JP-AMGEN-JPNSP2012079108

PATIENT
  Age: 79 Year
  Sex: Female

DRUGS (15)
  1. ENBREL [Suspect]
     Indication: RHEUMATOID ARTHRITIS
     Dosage: 25 MG, WEEKLY
     Route: 058
     Dates: start: 20111219, end: 20111226
  2. ENBREL [Suspect]
     Dosage: 25 MG, UNK
     Route: 058
     Dates: start: 20111226, end: 20120509
  3. ENBREL [Suspect]
     Dosage: 25 MG EVEY OTHER WEEK
     Route: 058
     Dates: start: 20120509, end: 20120801
  4. ENBREL [Suspect]
     Dosage: 25 MG, SINGLE
     Route: 058
     Dates: start: 20120926, end: 20120926
  5. GASTER [Suspect]
     Indication: GASTRITIS
     Dosage: 20 MG, 1X/DAY
     Route: 048
     Dates: end: 20120801
  6. ISCOTIN [Suspect]
     Indication: ANTIBIOTIC PROPHYLAXIS
     Dosage: 300 MG, 1X/DAY
     Route: 048
     Dates: start: 20120509, end: 20120801
  7. CONIEL [Concomitant]
     Indication: HYPERTENSION
     Dosage: 4 MG, 2X/DAY
     Route: 048
     Dates: start: 20050905
  8. RHYTHMY [Concomitant]
     Indication: INSOMNIA
     Dosage: 1 MG, 1X/DAY
     Route: 048
     Dates: start: 20110926, end: 20120702
  9. LOXONIN [Concomitant]
     Indication: RHEUMATOID ARTHRITIS
     Dosage: 60 MG, 2X/DAY
     Route: 048
     Dates: end: 20120606
  10. METHYCOBAL [Concomitant]
     Indication: NEURALGIA
     Dosage: 0.5 MG, 2X/DAY
     Route: 048
  11. MUCOSTA [Concomitant]
     Indication: GASTRITIS
     Dosage: 100 MG, 2X/DAY
     Route: 048
     Dates: start: 20100304
  12. PREDNISOLONE [Concomitant]
     Indication: RHEUMATOID ARTHRITIS
     Dosage: 0.5 MG, 1X/DAY
     Route: 048
     Dates: end: 20120912
  13. PYDOXAL [Concomitant]
     Indication: ANTIBIOTIC PROPHYLAXIS
     Dosage: 10 MG, 1X/DAY
     Route: 048
     Dates: start: 20120509, end: 20120801
  14. PYDOXAL [Concomitant]
     Indication: ANTIBIOTIC PROPHYLAXIS
  15. GASMOTIN [Concomitant]
     Indication: GASTRITIS
     Dosage: 5 MG, 3X/DAY
     Route: 048
     Dates: start: 20120426

REACTIONS (2)
  - Pancytopenia [Recovering/Resolving]
  - Systemic lupus erythematosus [Recovering/Resolving]
